FAERS Safety Report 5425275-1 (Version None)
Quarter: 2007Q3

REPORT INFORMATION
  Report Type: 
  Country: None (occurrence: None)
  Receive Date: 20070824
  Receipt Date: 20070810
  Transmission Date: 20080115
  Serious: Yes (Other)
  Sender: FDA-Public Use
  Company Number: US-PFIZER INC-2007047210

PATIENT
  Sex: Female

DRUGS (2)
  1. LYRICA [Suspect]
     Indication: PAIN
  2. TOPAMAX [Suspect]

REACTIONS (3)
  - DEAFNESS [None]
  - DEPRESSION [None]
  - SUICIDAL IDEATION [None]
